FAERS Safety Report 7737236-8 (Version None)
Quarter: 2011Q3

REPORT INFORMATION
  Report Type: 
  Country: None (occurrence: None)
  Receive Date: 20110908
  Receipt Date: 20110824
  Transmission Date: 20111222
  Serious: Yes (Other)
  Sender: FDA-Public Use
  Company Number: US-JNJFOC-20110503115

PATIENT
  Age: 44 Year
  Sex: Male
  Weight: 83.01 kg

DRUGS (2)
  1. ROGAINE EXTRA STRENGTH (FOR MEN) [Suspect]
     Route: 061
  2. ROGAINE EXTRA STRENGTH (FOR MEN) [Suspect]
     Indication: ALOPECIA
     Dosage: HALF OF CUP ONCE
     Route: 061
     Dates: start: 20110504, end: 20110501

REACTIONS (5)
  - LOSS OF EMPLOYMENT [None]
  - HYPERSENSITIVITY [None]
  - PAIN [None]
  - FOLLICULITIS [None]
  - DEFORMITY [None]
